FAERS Safety Report 9037162 (Version 1)
Quarter: 2013Q1

REPORT INFORMATION
  Report Type: Spontaneous
  Country: US (occurrence: None)
  Receive Date: 20130123
  Receipt Date: 20130123
  Transmission Date: 20140127
  Serious: Yes (Life-Threatening, Hospitalization)
  Sender: FDA-Public Use
  Company Number: None

PATIENT
  Age: 89 Year
  Sex: Female
  Weight: 51.3 kg

DRUGS (1)
  1. PROTHROMBIN [Suspect]
     Route: 040
     Dates: start: 20120711, end: 20120711

REACTIONS (1)
  - Embolic stroke [None]
